FAERS Safety Report 5025463-2 (Version None)
Quarter: 2006Q2

REPORT INFORMATION
  Report Type: 
  Country: None (occurrence: None)
  Receive Date: 20060608
  Receipt Date: 20060524
  Transmission Date: 20061013
  Serious: Yes (Death, Hospitalization, Other)
  Sender: FDA-Public Use
  Company Number: 2006-DE-02689GD

PATIENT
  Age: 54 Year
  Sex: Male

DRUGS (9)
  1. AZATHIOPRINE [Suspect]
     Indication: IMMUNOSUPPRESSION
  2. ANTITHYMOCYTE GLOBULIN (ANTITHYMOCYTE IMMUNOGLOBULIN) [Suspect]
     Indication: IMMUNOSUPPRESSION
     Dosage: HIGH DOSE (PULSE) ON POSTTRANSPLANTATIONAL DAY 21
  3. ANTITHYMOCYTE GLOBULIN (ANTITHYMOCYTE IMMUNOGLOBULIN) [Suspect]
     Indication: TRANSPLANT REJECTION
     Dosage: HIGH DOSE (PULSE) ON POSTTRANSPLANTATIONAL DAY 21
  4. METHYLPREDNISOLONE [Suspect]
     Indication: IMMUNOSUPPRESSION
     Dosage: HIGH DOSE (PULSE) ON POSTTRANSPLANTATIONAL DAY 21
  5. METHYLPREDNISOLONE [Suspect]
     Indication: TRANSPLANT REJECTION
     Dosage: HIGH DOSE (PULSE) ON POSTTRANSPLANTATIONAL DAY 21
  6. TACROLIMUS (TACROLIMUS) [Suspect]
     Indication: IMMUNOSUPPRESSION
  7. TRIMETHOPRIM-SULFAMETHOXAZOLE (INFECTRIN) [Concomitant]
  8. VALGANCICLOVIR HCL [Concomitant]
  9. LAMIVUDINE [Concomitant]

REACTIONS (34)
  - ABDOMINAL HAEMATOMA [None]
  - ABDOMINAL PAIN [None]
  - ATRIAL FIBRILLATION [None]
  - BRONCHOPNEUMONIA [None]
  - BUNDLE BRANCH BLOCK LEFT [None]
  - CARDIAC ARREST [None]
  - CHOLESTASIS [None]
  - CHORIOMENINGITIS LYMPHOCYTIC [None]
  - COAGULOPATHY [None]
  - CONVULSION [None]
  - DEPRESSED LEVEL OF CONSCIOUSNESS [None]
  - DIALYSIS [None]
  - HEADACHE [None]
  - HEPATIC CIRRHOSIS [None]
  - HEPATIC FUNCTION ABNORMAL [None]
  - HEPATIC NECROSIS [None]
  - HEPATIC STEATOSIS [None]
  - HEPATITIS B [None]
  - HEPATITIS C [None]
  - HYPOTENSION [None]
  - HYPOXIA [None]
  - ISCHAEMIA [None]
  - LEUKOPENIA [None]
  - LIVER TRANSPLANT REJECTION [None]
  - MENTAL STATUS CHANGES [None]
  - MULTI-ORGAN FAILURE [None]
  - POST PROCEDURAL COMPLICATION [None]
  - PULMONARY OEDEMA [None]
  - PYREXIA [None]
  - RENAL FAILURE [None]
  - RESPIRATORY FAILURE [None]
  - SHOULDER PAIN [None]
  - SUBARACHNOID HAEMORRHAGE [None]
  - THROMBOCYTOPENIA [None]
